FAERS Safety Report 9638518 (Version 1)
Quarter: 2013Q4

REPORT INFORMATION
  Report Type: Spontaneous
  Country: ES (occurrence: ES)
  Receive Date: 20131022
  Receipt Date: 20131022
  Transmission Date: 20140711
  Serious: Yes (Other)
  Sender: FDA-Public Use
  Company Number: ES-UCBSA-100225

PATIENT
  Sex: Male

DRUGS (1)
  1. VIMPAT [Suspect]
     Indication: EPILEPSY
     Dosage: DRUG STRENGTH: 150 MG TABLET; 2 INTAKES
     Route: 048
     Dates: start: 20130801, end: 20130902

REACTIONS (3)
  - Convulsion [Recovered/Resolved]
  - Oedema peripheral [Recovering/Resolving]
  - Condition aggravated [Recovered/Resolved]
